FAERS Safety Report 5255188-X (Version None)
Quarter: 2007Q1

REPORT INFORMATION
  Report Type: 
  Country: None (occurrence: None)
  Receive Date: 20070305
  Receipt Date: 20070226
  Transmission Date: 20070707
  Serious: Yes (Life-Threatening, Hospitalization)
  Sender: FDA-Public Use
  Company Number: PHBS2007NL00948

PATIENT
  Age: 62 Year
  Sex: Male
  Weight: 100 kg

DRUGS (2)
  1. RITALIN [Suspect]
     Indication: FLAT AFFECT
     Dosage: 10 MG, QD
     Route: 065
     Dates: start: 20061218, end: 20070106
  2. REMERON [Concomitant]
     Dosage: 30 MG, QD
     Route: 065
     Dates: start: 20010101

REACTIONS (9)
  - ACUTE CORONARY SYNDROME [None]
  - ACUTE MYOCARDIAL INFARCTION [None]
  - ANGINA PECTORIS [None]
  - CHEST PAIN [None]
  - CORONARY ANGIOPLASTY [None]
  - CORONARY ARTERY STENOSIS [None]
  - DIABETES MELLITUS [None]
  - ELECTROCARDIOGRAM ST SEGMENT ELEVATION [None]
  - HYPERHIDROSIS [None]
